FAERS Safety Report 5462969-6 (Version None)
Quarter: 2007Q3

REPORT INFORMATION
  Report Type: 
  Country: None (occurrence: None)
  Receive Date: 20070920
  Receipt Date: 20070725
  Transmission Date: 20080115
  Serious: No
  Sender: FDA-Public Use
  Company Number: US-BAUSCH-2007BL002577

PATIENT
  Age: 51 Year
  Sex: Female

DRUGS (3)
  1. ZYLET [Suspect]
     Indication: CONJUNCTIVITIS
     Route: 047
     Dates: start: 20070710, end: 20070710
  2. LOTEMAX [Suspect]
     Indication: CONJUNCTIVITIS
     Route: 047
     Dates: start: 20070711, end: 20070711
  3. LOTEMAX [Suspect]
     Indication: EYELID MARGIN CRUSTING
     Route: 047
     Dates: start: 20070711, end: 20070711

REACTIONS (6)
  - CONDITION AGGRAVATED [None]
  - EYE PRURITUS [None]
  - EYELID OEDEMA [None]
  - EYELIDS PRURITUS [None]
  - HYPERAESTHESIA [None]
  - KERATOCONJUNCTIVITIS SICCA [None]
